FAERS Safety Report 8923139 (Version 1)
Quarter: 2012Q4

REPORT INFORMATION
  Report Type: Spontaneous
  Country: US (occurrence: None)
  Receive Date: 20121115
  Receipt Date: 20121115
  Transmission Date: 20130627
  Serious: No
  Sender: FDA-Public Use
  Company Number: C-12-078

PATIENT
  Age: 61 Year
  Sex: Male

DRUGS (4)
  1. OXYCODONE [Suspect]
     Indication: PAIN
     Dosage: 5x daily
     Route: 048
  2. OXYCODONE [Suspect]
     Indication: INTERVERTEBRAL DISC DEGENERATION
     Dosage: 5x daily
     Route: 048
  3. OXYCODONE [Suspect]
     Dosage: 5x daily
     Route: 048
  4. OXYCODONE [Suspect]
     Dosage: 5x daily
     Route: 048

REACTIONS (4)
  - Drug ineffective [None]
  - Product commingling [None]
  - Product quality issue [None]
  - Feeling abnormal [None]
